FAERS Safety Report 6923922-6 (Version None)
Quarter: 2010Q3

REPORT INFORMATION
  Report Type: 
  Country: None (occurrence: None)
  Receive Date: 20100813
  Receipt Date: 20100805
  Transmission Date: 20110219
  Serious: Yes (Other)
  Sender: FDA-Public Use
  Company Number: GB-ELI_LILLY_AND_COMPANY-GB201008001783

PATIENT
  Age: 55 Year
  Sex: Female

DRUGS (2)
  1. EXENATIDE [Suspect]
     Dosage: 5 UG, UNKNOWN
     Route: 065
  2. EXENATIDE [Suspect]
     Dosage: 10 UG, UNKNOWN
     Route: 065

REACTIONS (2)
  - BLOOD GLUCOSE INCREASED [None]
  - INCORRECT DOSE ADMINISTERED [None]
